FAERS Safety Report 9520734 (Version 1)
Quarter: 2013Q3

REPORT INFORMATION
  Report Type: Spontaneous
  Country: US (occurrence: None)
  Receive Date: 20130911
  Receipt Date: 20130911
  Transmission Date: 20140515
  Serious: No
  Sender: FDA-Public Use
  Company Number: None

PATIENT
  Sex: Male
  Weight: 79.38 kg

DRUGS (1)
  1. EXJADE [Suspect]
     Indication: IRON OVERLOAD
     Dosage: 375 MG DAILY ORAL
     Route: 048
     Dates: start: 201304, end: 201309

REACTIONS (7)
  - Fatigue [None]
  - Weight increased [None]
  - Dyspepsia [None]
  - Gastrooesophageal reflux disease [None]
  - Drug ineffective [None]
  - Pain in extremity [None]
  - Pain in extremity [None]
